FAERS Safety Report 11795189 (Version 3)
Quarter: 2016Q1

REPORT INFORMATION
  Report Type: Spontaneous
  Country: US (occurrence: US)
  Receive Date: 20151202
  Receipt Date: 20160107
  Transmission Date: 20160525
  Serious: Yes (Death, Other)
  Sender: FDA-Public Use
  Company Number: US-009507513-1504USA012007

PATIENT
  Age: 59 Year
  Sex: Male

DRUGS (2)
  1. CUBICIN [Suspect]
     Active Substance: DAPTOMYCIN
     Dosage: 4.5 MG/KG, Q36H
     Route: 042
  2. CUBICIN [Suspect]
     Active Substance: DAPTOMYCIN
     Indication: ENTEROCOCCAL BACTERAEMIA
     Dosage: 6 MG/KG, QD, ONCE
     Route: 042

REACTIONS (4)
  - Drug ineffective [Unknown]
  - Renal impairment [Unknown]
  - Death [Fatal]
  - Creatinine renal clearance decreased [Unknown]
